FAERS Safety Report 15860749 (Version 1)
Quarter: 2019Q1

REPORT INFORMATION
  Report Type: Spontaneous
  Country: IT (occurrence: IT)
  Receive Date: 20190124
  Receipt Date: 20190124
  Transmission Date: 20190417
  Serious: Yes (Other)
  Sender: FDA-Public Use
  Company Number: IT-BAXTER-2019BAX001096

PATIENT
  Age: 6 Year
  Sex: Male

DRUGS (5)
  1. METHOTREXATE. [Suspect]
     Active Substance: METHOTREXATE
     Indication: PRODUCT USED FOR UNKNOWN INDICATION
     Route: 037
  2. ENDOXAN BAXTER [Suspect]
     Active Substance: CYCLOPHOSPHAMIDE
     Indication: PRODUCT USED FOR UNKNOWN INDICATION
     Route: 065
  3. VINCRISTINE SULFATE. [Suspect]
     Active Substance: VINCRISTINE SULFATE
     Indication: PRODUCT USED FOR UNKNOWN INDICATION
     Route: 065
  4. ARA-C [Suspect]
     Active Substance: CYTARABINE
     Indication: PRODUCT USED FOR UNKNOWN INDICATION
     Route: 037
  5. CICLOSPORIN [Suspect]
     Active Substance: CYCLOSPORINE
     Indication: STEM CELL TRANSPLANT
     Dosage: 1 MG/KG/DAY
     Route: 042

REACTIONS (12)
  - Graft versus host disease [Recovered/Resolved]
  - Transplant rejection [Unknown]
  - Visual impairment [Unknown]
  - Seizure [Recovered/Resolved]
  - Blood pressure increased [Unknown]
  - Seizure [Unknown]
  - Focal dyscognitive seizures [Not Recovered/Not Resolved]
  - Hypertension [Unknown]
  - Toxic encephalopathy [Recovered/Resolved]
  - Drug level increased [Recovered/Resolved]
  - Cerebrosclerosis [Not Recovered/Not Resolved]
  - Demyelination [Unknown]
